FAERS Safety Report 9986621 (Version 2)
Quarter: 2014Q1

REPORT INFORMATION
  Report Type: Report from Study
  Country: US (occurrence: US)
  Receive Date: 20140307
  Receipt Date: 20140307
  Transmission Date: 20141002
  Serious: No
  Sender: FDA-Public Use
  Company Number: US-ABBVIE-13P-163-1035945-00

PATIENT
  Age: 41 Year
  Sex: Female
  Weight: 104.42 kg

DRUGS (10)
  1. HUMIRA [Suspect]
     Indication: RHEUMATOID ARTHRITIS
     Route: 058
  2. AMLODIPINE [Concomitant]
     Indication: HYPERTENSION
     Dosage: UNKNOWN
  3. KLOR-CON [Concomitant]
     Indication: BLOOD POTASSIUM
     Dosage: UNKNOWN
  4. LISINOPRIL [Concomitant]
     Indication: PRODUCT USED FOR UNKNOWN INDICATION
     Dosage: UNKNOWN
  5. PRAVASTATIN [Concomitant]
     Indication: PRODUCT USED FOR UNKNOWN INDICATION
     Dosage: UNKNOWN
  6. METFORMIN [Concomitant]
     Indication: DIABETES MELLITUS
     Dosage: UNKNOWN
  7. LIPITOR [Concomitant]
     Indication: HYPERLIPIDAEMIA
  8. HYDROCHLOORTHIAZIDE [Concomitant]
     Indication: HYPERTENSION
  9. PREDNISONE [Concomitant]
     Indication: RHEUMATOID ARTHRITIS
  10. ETOBOLAC [Concomitant]
     Indication: PAIN IN EXTREMITY

REACTIONS (3)
  - Glucose tolerance impaired [Unknown]
  - Burning sensation [Not Recovered/Not Resolved]
  - Vitamin D decreased [Not Recovered/Not Resolved]
